FAERS Safety Report 4373289-5 (Version None)
Quarter: 2004Q2

REPORT INFORMATION
  Report Type: 
  Country: None (occurrence: None)
  Receive Date: 20040603
  Receipt Date: 20040521
  Transmission Date: 20050107
  Serious: Yes (Other)
  Sender: FDA-Public Use
  Company Number: S04-USA-02969-01

PATIENT

DRUGS (3)
  1. LEXAPRO [Suspect]
     Dosage: 10 MG QD; PO
     Route: 048
  2. ACCUTANE [Suspect]
     Indication: ACNE
     Dosage: 20 MG QD
     Dates: start: 20031201
  3. ACCUTANE [Suspect]
     Indication: ACNE
     Dosage: 30 MG QD; PO
     Route: 048

REACTIONS (7)
  - AMNESIA [None]
  - CONVULSION [None]
  - NAUSEA [None]
  - PHOTOPSIA [None]
  - SOMNOLENCE [None]
  - VISUAL DISTURBANCE [None]
  - VOMITING [None]
